FAERS Safety Report 11921925 (Version 1)
Quarter: 2016Q1

REPORT INFORMATION
  Report Type: Not Available
  Country: US (occurrence: US)
  Receive Date: 20160115
  Receipt Date: 20160115
  Transmission Date: 20160526
  Serious: Yes (Hospitalization)
  Sender: FDA-Public Use
  Company Number: US-ANIPHARMA-2016-US-000096

PATIENT
  Age: 35 Year
  Sex: Female

DRUGS (1)
  1. OXYCODONE (NON-SPECIFIC) [Suspect]
     Active Substance: OXYCODONE

REACTIONS (9)
  - Unresponsive to stimuli [None]
  - Quadriplegia [Unknown]
  - Respiratory acidosis [None]
  - Respiratory depression [Unknown]
  - Spinal cord ischaemia [None]
  - Muscle spasticity [None]
  - Automatic bladder [None]
  - Spinal cord injury [Unknown]
  - Intentional overdose [Unknown]
